APPROVED DRUG PRODUCT: PATHILON
Active Ingredient: TRIDIHEXETHYL CHLORIDE
Strength: 25MG
Dosage Form/Route: TABLET;ORAL
Application: N009489 | Product #005
Applicant: LEDERLE LABORATORIES DIV AMERICAN CYANAMID CO
Approved: Approved Prior to Jan 1, 1982 | RLD: No | RS: No | Type: DISCN